FAERS Safety Report 8451201-7 (Version None)
Quarter: 2012Q2

REPORT INFORMATION
  Report Type: 
  Country: None (occurrence: None)
  Receive Date: 20120620
  Receipt Date: 20120416
  Transmission Date: 20120825
  Serious: No
  Sender: FDA-Public Use
  Company Number: US-VERTEX PHARMACEUTICALS INC.-AE-2011-004690

PATIENT
  Sex: Male
  Weight: 104.42 kg

DRUGS (4)
  1. PEGASYS [Concomitant]
     Indication: HEPATITIS C
     Route: 058
     Dates: start: 20111204
  2. XANAX [Concomitant]
  3. INCIVEK [Suspect]
     Indication: HEPATITIS C
     Route: 048
     Dates: start: 20111204
  4. RIBAVIRIN [Concomitant]
     Indication: HEPATITIS C
     Route: 048
     Dates: start: 20111204

REACTIONS (7)
  - ANORECTAL DISCOMFORT [None]
  - RASH [None]
  - ANAL PRURITUS [None]
  - DIARRHOEA [None]
  - FATIGUE [None]
  - ABDOMINAL PAIN UPPER [None]
  - PRURITUS [None]
